FAERS Safety Report 20752063 (Version 1)
Quarter: 2022Q2

REPORT INFORMATION
  Report Type: Spontaneous
  Country: US (occurrence: US)
  Receive Date: 20220426
  Receipt Date: 20220426
  Transmission Date: 20220721
  Serious: Yes (Other)
  Sender: FDA-Public Use
  Company Number: US-Fresenius Medical Care Renal Therapies Group-FMC-2204-000585

PATIENT
  Age: 56 Year
  Sex: Male
  Weight: 78.5 kg

DRUGS (2)
  1. DELFLEX WITH DEXTROSE 1.5% LOW MAGNESIUM LOW CALCIUM [Suspect]
     Active Substance: CALCIUM CHLORIDE\DEXTROSE\MAGNESIUM CHLORIDE\SODIUM CHLORIDE\SODIUM LACTATE
     Indication: End stage renal disease
     Dosage: UTILIZES A STAY SAFE ORGANIZER AND USES 5L DELFLEX SOLUTION.
     Route: 033
  2. DELFLEX WITH DEXTROSE 2.5% LOW MAGNESIUM LOW CALCIUM [Suspect]
     Active Substance: CALCIUM CHLORIDE\DEXTROSE\MAGNESIUM CHLORIDE\SODIUM CHLORIDE\SODIUM LACTATE
     Indication: End stage renal disease
     Dosage: UTILIZES A STAY SAFE ORGANIZER AND USES 5L DELFLEX SOLUTION.
     Route: 033

REACTIONS (3)
  - Peritonitis bacterial [Unknown]
  - Discomfort [Unknown]
  - Abdominal distension [Unknown]

NARRATIVE: CASE EVENT DATE: 20220328
